FAERS Safety Report 19471350 (Version 1)
Quarter: 2021Q2

REPORT INFORMATION
  Report Type: Spontaneous
  Country: US (occurrence: US)
  Receive Date: 20210628
  Receipt Date: 20210628
  Transmission Date: 20210717
  Serious: Yes (Hospitalization)
  Sender: FDA-Public Use
  Company Number: None

PATIENT
  Age: 57 Year
  Sex: Female

DRUGS (1)
  1. ORENCIA [Suspect]
     Active Substance: ABATACEPT
     Indication: RHEUMATOID ARTHRITIS
     Dosage: OTHER FREQUENCY:ONCE A WEEK;?
     Route: 058
     Dates: start: 20201020

REACTIONS (4)
  - Urticaria [None]
  - Throat tightness [None]
  - Hypersensitivity [None]
  - Pharyngeal swelling [None]

NARRATIVE: CASE EVENT DATE: 20210627
